FAERS Safety Report 10314986 (Version 3)
Quarter: 2014Q3

REPORT INFORMATION
  Report Type: Spontaneous
  Country: IT (occurrence: IT)
  Receive Date: 20140718
  Receipt Date: 20140808
  Transmission Date: 20150326
  Serious: Yes (Death, Other)
  Sender: FDA-Public Use
  Company Number: IT-SA-2014SA094033

PATIENT
  Age: 53 Year
  Sex: Female

DRUGS (3)
  1. CLEXANE [Suspect]
     Active Substance: ENOXAPARIN SODIUM
     Indication: THROMBOSIS PROPHYLAXIS
     Route: 058
     Dates: start: 20140614, end: 20140623
  2. CITALOPRAM [Concomitant]
     Active Substance: CITALOPRAM HYDROBROMIDE
     Route: 048
  3. TOTALIP [Concomitant]
     Active Substance: ATORVASTATIN
     Route: 048

REACTIONS (11)
  - Hypotension [Unknown]
  - Deep vein thrombosis [Fatal]
  - Chest pain [Unknown]
  - Heparin-induced thrombocytopenia test [Fatal]
  - Cold sweat [Unknown]
  - Adrenal haematoma [Fatal]
  - Dyspnoea [Unknown]
  - Anaemia [Unknown]
  - Abdominal pain [Unknown]
  - Oedema peripheral [Fatal]
  - Pain in extremity [Fatal]

NARRATIVE: CASE EVENT DATE: 20140624
